FAERS Safety Report 7605383-7 (Version None)
Quarter: 2011Q3

REPORT INFORMATION
  Report Type: 
  Country: None (occurrence: None)
  Receive Date: 20110705
  Receipt Date: 20110628
  Transmission Date: 20111222
  Serious: Yes (Disabling, Other)
  Sender: FDA-Public Use
  Company Number: FK201101145

PATIENT
  Age: 90 Year
  Sex: Male

DRUGS (1)
  1. INTRALIPID 20% [Suspect]
     Indication: PARENTERAL NUTRITION
     Dosage: 300 ML (3 BAGS), INTRAVENOUS DRIP
     Route: 041
     Dates: start: 20110520, end: 20110523

REACTIONS (5)
  - HEMIPLEGIA [None]
  - BLOOD DISORDER [None]
  - OVERDOSE [None]
  - CEREBRAL INFARCTION [None]
  - BRAIN OEDEMA [None]
